FAERS Safety Report 6501633-9 (Version None)
Quarter: 2009Q4

REPORT INFORMATION
  Report Type: 
  Country: None (occurrence: None)
  Receive Date: 20091216
  Receipt Date: 20091209
  Transmission Date: 20100525
  Serious: Yes (Hospitalization)
  Sender: FDA-Public Use
  Company Number: US-ELI_LILLY_AND_COMPANY-US200912002590

PATIENT
  Sex: Female

DRUGS (2)
  1. HUMULIN R [Suspect]
     Indication: DIABETES MELLITUS
     Dosage: 33 U, EACH MORNING
     Dates: start: 20060101
  2. HUMULIN R [Suspect]
     Dosage: 32 U, EACH EVENING
     Dates: start: 20060101

REACTIONS (2)
  - CELLULITIS [None]
  - HYPOAESTHESIA [None]
